FAERS Safety Report 5447932-3 (Version None)
Quarter: 2007Q3

REPORT INFORMATION
  Report Type: 
  Country: None (occurrence: None)
  Receive Date: 20070910
  Receipt Date: 20070905
  Transmission Date: 20080115
  Serious: Yes (Hospitalization)
  Sender: FDA-Public Use
  Company Number: FRWYE089126OCT05

PATIENT
  Age: 34 Year
  Sex: Female
  Weight: 104 kg

DRUGS (1)
  1. LEVONORGESTREL AND ETHINYL ESTRADIOL [Suspect]
     Indication: CONTRACEPTION
     Route: 048
     Dates: start: 19990101, end: 20050713

REACTIONS (2)
  - ANTINUCLEAR ANTIBODY POSITIVE [None]
  - RENAL INFARCT [None]
